FAERS Safety Report 8815467 (Version 1)
Quarter: 2012Q4

REPORT INFORMATION
  Report Type: 
  Country: US (occurrence: US)
  Receive Date: 20120928
  Receipt Date: 20120928
  Transmission Date: 20130627
  Serious: Yes (Death, Hospitalization)
  Sender: FDA-Public Use
  Company Number: US-GLAXOSMITHKLINE-A0778529A

PATIENT
  Age: 46 Year
  Sex: Male

DRUGS (1)
  1. AVANDIA [Suspect]
     Indication: DIABETES MELLITUS
     Route: 065

REACTIONS (10)
  - Cardiac failure congestive [Fatal]
  - Cerebrovascular accident [Unknown]
  - Pulmonary oedema [Unknown]
  - Cerebral ischaemia [Unknown]
  - Hypoxic-ischaemic encephalopathy [Unknown]
  - Convulsion [Unknown]
  - Cardio-respiratory arrest [Unknown]
  - Coronary artery disease [Unknown]
  - Cardiomyopathy [Unknown]
  - Arrhythmia [Fatal]
